FAERS Safety Report 25789214 (Version 2)
Quarter: 2025Q3

REPORT INFORMATION
  Report Type: Spontaneous
  Country: CA (occurrence: CA)
  Receive Date: 20250911
  Receipt Date: 20250926
  Transmission Date: 20251021
  Serious: Yes (Other)
  Sender: ACCORD
  Company Number: None

PATIENT
  Age: 81 Year
  Sex: Male

DRUGS (10)
  1. METHOTREXATE SODIUM [Suspect]
     Active Substance: METHOTREXATE SODIUM
     Indication: Dermatomyositis
     Route: 058
  2. CARBOPLATIN [Concomitant]
     Active Substance: CARBOPLATIN
     Indication: Lung squamous cell carcinoma metastatic
     Route: 042
  3. GEMCITABINE [Concomitant]
     Active Substance: GEMCITABINE
     Indication: Lung squamous cell carcinoma metastatic
  4. IMMUNOGLOBULIN [Concomitant]
     Indication: Dermatomyositis
     Route: 042
  5. PREDNISONE [Concomitant]
     Active Substance: PREDNISONE
     Indication: Dermatomyositis
  6. NIVOLUMAB [Concomitant]
     Active Substance: NIVOLUMAB
     Indication: Lung squamous cell carcinoma stage II
  7. PREDNISONE [Concomitant]
     Active Substance: PREDNISONE
     Indication: Dermatomyositis
  8. PREDNISONE [Concomitant]
     Active Substance: PREDNISONE
     Indication: Dermatomyositis
  9. PREDNISONE [Concomitant]
     Active Substance: PREDNISONE
     Indication: Dermatomyositis
  10. PREDNISONE [Concomitant]
     Active Substance: PREDNISONE
     Indication: Dermatomyositis

REACTIONS (3)
  - Off label use [Unknown]
  - Cytopenia [Unknown]
  - Drug ineffective for unapproved indication [Unknown]
